FAERS Safety Report 20084635 (Version 6)
Quarter: 2022Q1

REPORT INFORMATION
  Report Type: Spontaneous
  Country: PT (occurrence: PT)
  Receive Date: 20211118
  Receipt Date: 20220106
  Transmission Date: 20220423
  Serious: Yes (Life-Threatening, Hospitalization, Disabling, Other)
  Sender: FDA-Public Use
  Company Number: PT-AUROBINDO-AUR-APL-2021-045646

PATIENT
  Age: 79 Year
  Sex: Female

DRUGS (6)
  1. AZITHROMYCIN [Suspect]
     Active Substance: AZITHROMYCIN
     Indication: Tonsillitis
     Dosage: UNK
     Route: 065
  2. FLUCONAZOLE [Suspect]
     Active Substance: FLUCONAZOLE
     Indication: Product used for unknown indication
     Dosage: UNK
     Route: 065
  3. PIPERACILLIN AND TAZOBACTAM [Suspect]
     Active Substance: PIPERACILLIN SODIUM\TAZOBACTAM SODIUM
     Indication: Product used for unknown indication
     Dosage: UNK
     Route: 065
  4. PENICILLIN G BENZATHINE [Suspect]
     Active Substance: PENICILLIN G BENZATHINE
     Indication: Tonsillitis
     Dosage: UNK
     Route: 065
  5. CANAGLIFLOZIN [Suspect]
     Active Substance: CANAGLIFLOZIN
     Indication: Diabetes mellitus
     Dosage: UNK
     Route: 065
  6. CLEMIZOLE PENICILLIN [Suspect]
     Active Substance: CLEMIZOLE PENICILLIN
     Indication: Tonsillitis
     Dosage: 1 DOSAGE FORM
     Route: 065

REACTIONS (17)
  - SJS-TEN overlap [Unknown]
  - Stevens-Johnson syndrome [Recovering/Resolving]
  - Ulcerative keratitis [Recovering/Resolving]
  - Lip oedema [Recovering/Resolving]
  - Dysphagia [Recovering/Resolving]
  - Blister [Recovering/Resolving]
  - Rash macular [Unknown]
  - Toxic epidermal necrolysis [Recovering/Resolving]
  - Acute kidney injury [Recovering/Resolving]
  - Oral candidiasis [Recovering/Resolving]
  - Odynophagia [Recovering/Resolving]
  - Macule [Recovering/Resolving]
  - Visual impairment [Recovering/Resolving]
  - Pyrexia [Recovering/Resolving]
  - Cholestasis [Recovering/Resolving]
  - Ocular hyperaemia [Recovering/Resolving]
  - Skin lesion [Unknown]
